FAERS Safety Report 7732885-5 (Version None)
Quarter: 2011Q3

REPORT INFORMATION
  Report Type: 
  Country: None (occurrence: None)
  Receive Date: 20110902
  Receipt Date: 20110902
  Transmission Date: 20111222
  Serious: Yes (Hospitalization)
  Sender: FDA-Public Use
  Company Number: None

PATIENT
  Age: 71 Year
  Sex: Male
  Weight: 84.1 kg

DRUGS (9)
  1. METOPROLOL SUCCINATE [Concomitant]
  2. TIOTROPIUM [Concomitant]
  3. DABIGATRAN 150 MG CAPSULES BOEHRINGER INGELHEIM [Suspect]
     Indication: ATRIAL FIBRILLATION
     Dosage: 150 MG TWICE DAILY ORAL  3-4 WEEKS PRIOR TO 6/26/11
     Route: 048
  4. LATANOPROST [Concomitant]
  5. ASPIRIN [Concomitant]
  6. SIMVASTATIN [Concomitant]
  7. RAMIPRIL [Concomitant]
  8. ISOSORBIDE MONONITRATE [Concomitant]
  9. SYMBICORT [Concomitant]

REACTIONS (4)
  - LOWER GASTROINTESTINAL HAEMORRHAGE [None]
  - RECTAL ULCER [None]
  - RECTAL HAEMORRHAGE [None]
  - HYPOTENSION [None]
